FAERS Safety Report 5856098-7 (Version None)
Quarter: 2008Q3

REPORT INFORMATION
  Report Type: 
  Country: None (occurrence: None)
  Receive Date: 20080818
  Receipt Date: 20080117
  Transmission Date: 20090109
  Serious: Yes (Hospitalization)
  Sender: FDA-Public Use
  Company Number: 08H-163-0313746-00

PATIENT
  Age: 72 Year
  Sex: Female

DRUGS (4)
  1. VANCOMYCIN HCL [Suspect]
     Dosage: 1 GM, ONCE, INTRAVENOUS PEGGY BACK
     Route: 042
     Dates: start: 20080115, end: 20080115
  2. ^THRYOID^ (THYROID) [Concomitant]
  3. LISINOPRIL [Concomitant]
  4. HYDROCHLOROTHIAZIDE [Concomitant]

REACTIONS (1)
  - RASH [None]
